FAERS Safety Report 24060184 (Version 1)
Quarter: 2024Q3

REPORT INFORMATION
  Report Type: Spontaneous
  Country: US (occurrence: US)
  Receive Date: 20240708
  Receipt Date: 20240708
  Transmission Date: 20241017
  Serious: No
  Sender: ELI LILLY AND CO
  Company Number: US-ELI_LILLY_AND_COMPANY-US202407004098

PATIENT
  Age: 36 Year
  Sex: Female

DRUGS (1)
  1. VERZENIO [Suspect]
     Active Substance: ABEMACICLIB
     Indication: Breast cancer female
     Dosage: 1 DOSAGE FORM, BID (WITH OR WITHOUT FOOD)
     Route: 048
     Dates: start: 20240604

REACTIONS (5)
  - Pelvic pain [Unknown]
  - Pruritus [Unknown]
  - Weight increased [Unknown]
  - Blood bilirubin increased [Unknown]
  - Nausea [Unknown]
